FAERS Safety Report 7239456-8 (Version None)
Quarter: 2011Q1

REPORT INFORMATION
  Report Type: 
  Country: None (occurrence: None)
  Receive Date: 20110121
  Receipt Date: 20101111
  Transmission Date: 20110831
  Serious: Yes (Life-Threatening, Hospitalization)
  Sender: FDA-Public Use
  Company Number: DE-AMGEN-QUU444621

PATIENT

DRUGS (34)
  1. ACETYLSALICYLIC ACID [Concomitant]
     Indication: CEREBROVASCULAR ACCIDENT PROPHYLAXIS
     Dosage: UNK UNK, UNK
  2. PANTOZOL [Concomitant]
     Dosage: UNKNOWN
  3. EXFORGE [Concomitant]
     Dosage: 5MG, FREQUENCY UNKNOWN
  4. AMLODIPINE/VALSARTAN [Concomitant]
     Dosage: 5MG, FREQUENCY UNKNOWN
  5. CALCIUM [Concomitant]
     Dosage: UNK UNK, UNK
  6. METHOTREXATE [Concomitant]
     Dosage: UNK UNK, UNK
  7. KEPPRA [Concomitant]
     Indication: EPILEPSY
     Dosage: UNKNOWN
  8. KEPPRA [Concomitant]
     Dosage: 1000 MG, 2X/DAY
     Route: 048
     Dates: start: 20080101
  9. MADOPAR [Concomitant]
     Dosage: UNK UNK, UNK
  10. MADOPAR [Concomitant]
     Dosage: UNKNOWN
  11. CALCIUM [Concomitant]
     Dosage: UNK
  12. PANTOZOL [Concomitant]
     Dosage: UNKNOWN
  13. LANTAREL [Concomitant]
     Indication: RHEUMATOID ARTHRITIS
     Dosage: 15 MG, WEEKLY
  14. SIMVASTATIN [Concomitant]
     Dosage: 20 MG, 1X/DAY
     Route: 048
  15. ACETYLSALICYLIC ACID [Concomitant]
     Dosage: 100MG, FREQUENCY UNKNOWN
  16. PREDNISOLONE [Concomitant]
     Indication: RHEUMATOID ARTHRITIS
     Dosage: 7.5 MG, 1X/DAY
     Route: 048
  17. ETANERCEPT [Suspect]
     Indication: RHEUMATOID ARTHRITIS
     Dosage: 50 MG, QWK
     Route: 058
     Dates: start: 20070205
  18. FOLIC ACID [Concomitant]
     Dosage: UNK UNK, UNK
  19. FOLIC ACID [Concomitant]
     Dosage: 5 MG, WEEKLY
     Route: 048
  20. MADOPAR [Concomitant]
     Dosage: UNK
  21. METHOTREXATE [Concomitant]
     Dosage: 15MG, FREQUENCY UNKNOWN
  22. ACETYLSALICYLIC ACID [Concomitant]
     Dosage: 100 MG, 1X/DAY
     Route: 048
     Dates: start: 20080101
  23. KEPPRA [Concomitant]
     Dosage: UNKNOWN
  24. MADOPAR [Concomitant]
     Dosage: UNKNOWN
  25. SIMVASTATIN [Concomitant]
     Dosage: UNKNOWN
  26. METHOTREXATE [Concomitant]
     Dosage: 15MG, FREQUENCY UNKNOWN
  27. EXFORGE [Concomitant]
     Dosage: 5MG, FREQUENCY UNKNOWN
  28. GLUCOCORTICOIDS [Concomitant]
  29. CALCIUM CARBONATE/COLECALCIFEROL [Concomitant]
     Dosage: 1 DF, 1X/DAY
     Route: 048
  30. FOLIC ACID [Concomitant]
     Dosage: UNKNOWN
  31. SIMVASTATIN [Concomitant]
     Indication: CEREBROVASCULAR ACCIDENT PROPHYLAXIS
     Dosage: UNK UNK, UNK
  32. CALCIUM [Concomitant]
     Dosage: UNKNOWN
  33. ACETYLSALICYLIC ACID [Concomitant]
     Dosage: 100MG, FREQUENCY UNKNOWN
  34. PANTOPRAZOLE [Concomitant]
     Dosage: 20 MG, 1X/DAY

REACTIONS (2)
  - CEREBROVASCULAR ACCIDENT [None]
  - RETINAL ARTERY EMBOLISM [None]
